FAERS Safety Report 12381975 (Version 1)
Quarter: 2016Q2

REPORT INFORMATION
  Report Type: Spontaneous
  Country: None (occurrence: None)
  Receive Date: 20160517
  Receipt Date: 20160517
  Transmission Date: 20160815
  Serious: Yes (Hospitalization)
  Sender: FDA-Public Use
  Company Number: None

PATIENT
  Age: 67 Year
  Sex: Male
  Weight: 63.9 kg

DRUGS (23)
  1. ACYCLOVIR. [Concomitant]
     Active Substance: ACYCLOVIR
  2. FUROSEMIDE. [Concomitant]
     Active Substance: FUROSEMIDE
  3. CEPHALEXIN. [Concomitant]
     Active Substance: CEPHALEXIN
  4. TRIAMCINOLONE ACETONIDE. [Concomitant]
     Active Substance: TRIAMCINOLONE ACETONIDE
  5. DEXAMETHASONE. [Concomitant]
     Active Substance: DEXAMETHASONE
  6. LIDOCAINE-PRILOCAINE [Concomitant]
     Active Substance: LIDOCAINE\PRILOCAINE
  7. OXYCODONE [Concomitant]
     Active Substance: OXYCODONE
  8. PALBOCICLIB [Suspect]
     Active Substance: PALBOCICLIB
     Indication: METASTATIC NEOPLASM
     Dosage: 125 MG QD DAYS 1-21 PO
     Route: 048
     Dates: start: 20150923, end: 20160504
  9. VITAMIN B50 COMPLEX [Concomitant]
  10. FINASTERIDE. [Concomitant]
     Active Substance: FINASTERIDE
  11. HYOSCYAMINE. [Concomitant]
     Active Substance: HYOSCYAMINE
  12. LISINOPRIL. [Concomitant]
     Active Substance: LISINOPRIL
  13. CLOBETASOL PROPIONATE. [Concomitant]
     Active Substance: CLOBETASOL PROPIONATE
  14. DIPHENHYDRAMINE. [Concomitant]
     Active Substance: DIPHENHYDRAMINE
  15. PROCHLORPERAZINE MALEATE. [Concomitant]
     Active Substance: PROCHLORPERAZINE MALEATE
  16. SPIRIVA [Concomitant]
     Active Substance: TIOTROPIUM BROMIDE MONOHYDRATE
  17. DOXEPIN [Concomitant]
     Active Substance: DOXEPIN
  18. CETUXIMAB [Suspect]
     Active Substance: CETUXIMAB
     Indication: METASTATIC NEOPLASM
     Route: 042
     Dates: start: 20150923, end: 20160505
  19. POTASSIUM CHLORIDE. [Concomitant]
     Active Substance: POTASSIUM CHLORIDE
  20. PREDNISONE. [Concomitant]
     Active Substance: PREDNISONE
  21. MUPIROCIN. [Concomitant]
     Active Substance: MUPIROCIN
  22. SULFAMETHOXAZOLE-TRIMETHOPRIM [Concomitant]
     Active Substance: SULFAMETHOXAZOLE\TRIMETHOPRIM
  23. FAMOTIDINE. [Concomitant]
     Active Substance: FAMOTIDINE

REACTIONS (9)
  - Urine leukocyte esterase positive [None]
  - Malignant neoplasm progression [None]
  - Bone pain [None]
  - Nitrite urine present [None]
  - Red blood cells urine positive [None]
  - Pyrexia [None]
  - Arthralgia [None]
  - Fatigue [None]
  - Protein urine present [None]

NARRATIVE: CASE EVENT DATE: 20160512
